FAERS Safety Report 9607470 (Version 1)
Quarter: 2013Q4

REPORT INFORMATION
  Report Type: Spontaneous
  Country: CH (occurrence: None)
  Receive Date: 20131004
  Receipt Date: 20131004
  Transmission Date: 20140711
  Serious: Yes (Hospitalization)
  Sender: FDA-Public Use
  Company Number: VAL_02757_2013

PATIENT
  Age: 90 Year
  Sex: Female
  Weight: 56 kg

DRUGS (3)
  1. CIBADREX [Suspect]
     Indication: PRODUCT USED FOR UNKNOWN INDICATION
     Dosage: 1 DF QD, (10/12.5 MG), ORAL
     Route: 048
     Dates: end: 20130807
  2. CONCOR [Concomitant]
  3. TRANXILIUM [Concomitant]

REACTIONS (7)
  - Asthenia [None]
  - General physical health deterioration [None]
  - Hyponatraemia [None]
  - Urinary tract infection [None]
  - Pulmonary fibrosis [None]
  - Cardiac failure [None]
  - Gravitational oedema [None]
